FAERS Safety Report 23059206 (Version 1)
Quarter: 2023Q4

REPORT INFORMATION
  Report Type: Spontaneous
  Country: US (occurrence: None)
  Receive Date: 20231012
  Receipt Date: 20231012
  Transmission Date: 20240109
  Serious: No
  Sender: FDA-Public Use
  Company Number: None

PATIENT
  Age: 57 Year
  Sex: Female
  Weight: 108.41 kg

DRUGS (1)
  1. COSENTYX [Suspect]
     Active Substance: SECUKINUMAB
     Indication: Ankylosing spondylitis
     Dosage: OTHER QUANTITY : 150MG (1 PEN);?FREQUENCY : AS DIRECTED;?
     Route: 058
     Dates: start: 202204

REACTIONS (5)
  - Urinary tract infection [None]
  - Fatigue [None]
  - Muscle spasms [None]
  - Muscle spasms [None]
  - Muscle spasms [None]
